FAERS Safety Report 7620949-6 (Version None)
Quarter: 2011Q3

REPORT INFORMATION
  Report Type: 
  Country: None (occurrence: None)
  Receive Date: 20110719
  Receipt Date: 20110711
  Transmission Date: 20111222
  Serious: Yes (Hospitalization, Disabling)
  Sender: FDA-Public Use
  Company Number: CA-MERCK-1107USA01446

PATIENT
  Age: 66 Year
  Sex: Female
  Weight: 68 kg

DRUGS (3)
  1. FOSAMAX PLUS D [Suspect]
     Route: 048
  2. IMOVANE [Concomitant]
     Route: 065
  3. SYNTHROID [Concomitant]
     Route: 065

REACTIONS (23)
  - DYSPHAGIA [None]
  - RHINORRHOEA [None]
  - ODYNOPHAGIA [None]
  - BLISTER [None]
  - OESOPHAGEAL ULCER [None]
  - MOUTH ULCERATION [None]
  - FATIGUE [None]
  - DYSPNOEA [None]
  - ASTHENOPIA [None]
  - LIVER DISORDER [None]
  - SKIN BURNING SENSATION [None]
  - OROPHARYNGEAL PAIN [None]
  - ARTHRALGIA [None]
  - GENITAL ULCERATION [None]
  - SKIN LESION [None]
  - SKIN EXFOLIATION [None]
  - COUGH [None]
  - EOSINOPHILIC OESOPHAGITIS [None]
  - NASAL ULCER [None]
  - RASH MACULO-PAPULAR [None]
  - HAEMOPTYSIS [None]
  - ALOPECIA [None]
  - PYREXIA [None]
